FAERS Safety Report 9237244 (Version 1)
Quarter: 2013Q2

REPORT INFORMATION
  Report Type: Spontaneous
  Country: US (occurrence: US)
  Receive Date: 20130417
  Receipt Date: 20130417
  Transmission Date: 20140414
  Serious: Yes (Other)
  Sender: FDA-Public Use
  Company Number: US-UCBSA-083330

PATIENT
  Age: 26 Year
  Sex: Male
  Weight: 61.2 kg

DRUGS (2)
  1. VIMPAT [Suspect]
     Indication: CONVULSION
     Dates: start: 2011, end: 20130409
  2. DEPAKOTE [Concomitant]
     Indication: CONVULSION
     Dosage: AT NIGHT

REACTIONS (2)
  - Grand mal convulsion [Recovering/Resolving]
  - Loss of consciousness [Unknown]
